FAERS Safety Report 6394559-5 (Version None)
Quarter: 2009Q4

REPORT INFORMATION
  Report Type: 
  Country: None (occurrence: None)
  Receive Date: 20091009
  Receipt Date: 20090928
  Transmission Date: 20100525
  Serious: Yes (Other)
  Sender: FDA-Public Use
  Company Number: US-BAYER-200933755NA

PATIENT
  Age: 68 Year
  Sex: Male
  Weight: 83 kg

DRUGS (20)
  1. MAGNEVIST [Suspect]
     Indication: NUCLEAR MAGNETIC RESONANCE IMAGING BRAIN
     Dates: start: 20040409, end: 20040409
  2. OMNISCAN [Suspect]
     Indication: NUCLEAR MAGNETIC RESONANCE IMAGING BRAIN
     Dosage: AS USED: 17 ML
     Dates: start: 20040715, end: 20040715
  3. OMNISCAN [Suspect]
     Dates: start: 20061005, end: 20061005
  4. OMNISCAN [Suspect]
     Dates: start: 20030918, end: 20030918
  5. OMNISCAN [Suspect]
     Dates: start: 20030715, end: 20030715
  6. OMNISCAN [Suspect]
     Dates: start: 20050728, end: 20050728
  7. ACYCLOVIR [Concomitant]
  8. PROTONIX [Concomitant]
  9. EPOGEN [Concomitant]
  10. THALOMID [Concomitant]
  11. FLOMAX [Concomitant]
  12. COUMADIN [Concomitant]
  13. SPIRIVA [Concomitant]
  14. NEPHROCAPS [Concomitant]
  15. FLONASE [Concomitant]
  16. MIDODRINE HYDROCHLORIDE [Concomitant]
  17. SENSIPAR [Concomitant]
  18. FE SUPPLEMENTS [Concomitant]
  19. RENAGEL [Concomitant]
  20. MEGESTROL ACETATE [Concomitant]

REACTIONS (20)
  - FALL [None]
  - HYPERKERATOSIS [None]
  - HYPOAESTHESIA [None]
  - JOINT CONTRACTURE [None]
  - JOINT RANGE OF MOTION DECREASED [None]
  - JOINT STIFFNESS [None]
  - MUSCULAR WEAKNESS [None]
  - MUSCULOSKELETAL STIFFNESS [None]
  - NEPHROGENIC SYSTEMIC FIBROSIS [None]
  - OCULAR ICTERUS [None]
  - OEDEMA [None]
  - PAIN IN EXTREMITY [None]
  - PARAESTHESIA [None]
  - PIGMENTATION DISORDER [None]
  - PRURITUS [None]
  - SKIN EXFOLIATION [None]
  - SKIN HYPERTROPHY [None]
  - SKIN INDURATION [None]
  - SKIN PLAQUE [None]
  - SKIN TIGHTNESS [None]
